FAERS Safety Report 15534808 (Version 1)
Quarter: 2018Q4

REPORT INFORMATION
  Report Type: Spontaneous
  Country: FR (occurrence: FR)
  Receive Date: 20181022
  Receipt Date: 20181022
  Transmission Date: 20190205
  Serious: Yes (Death)
  Sender: FDA-Public Use
  Company Number: FR-TEVA-2018-FR-966028

PATIENT
  Age: 60 Year
  Sex: Female
  Weight: 65 kg

DRUGS (11)
  1. TRAMADOL (CHLORHYDRATE DE) [Suspect]
     Active Substance: TRAMADOL HYDROCHLORIDE
     Indication: PAIN
     Dosage: 200 MILLIGRAM DAILY; FORME LP
     Route: 048
     Dates: start: 20180828, end: 20180905
  2. CILASTATINE ANHYDRE [Suspect]
     Active Substance: CILASTATIN
     Indication: INFECTION
     Dosage: 1500 MILLIGRAM DAILY;
     Route: 042
     Dates: start: 20180831, end: 20180905
  3. VENLAFAXINE [Suspect]
     Active Substance: VENLAFAXINE HYDROCHLORIDE
     Indication: ANXIETY
     Dosage: 37.5 MILLIGRAM DAILY;
     Route: 048
     Dates: start: 20180826, end: 20180905
  4. HEPARINE SODIQUE [Suspect]
     Active Substance: HEPARIN SODIUM
     Indication: ATRIAL FIBRILLATION
     Dosage: 2200 IU (INTERNATIONAL UNIT) DAILY;
     Route: 042
     Dates: start: 20180818, end: 20180902
  5. RAMIPRIL. [Concomitant]
     Active Substance: RAMIPRIL
     Route: 065
  6. PANTOPRAZOLE [Suspect]
     Active Substance: PANTOPRAZOLE
     Indication: PRODUCT USED FOR UNKNOWN INDICATION
     Dosage: 40 MILLIGRAM DAILY;
     Route: 048
     Dates: start: 20180818, end: 20180905
  7. FLUCONAZOLE. [Suspect]
     Active Substance: FLUCONAZOLE
     Indication: INFECTION
     Dosage: 400 MILLIGRAM DAILY;
     Route: 048
     Dates: start: 20180826, end: 20180902
  8. LOVENOX [Suspect]
     Active Substance: ENOXAPARIN SODIUM
     Indication: ATRIAL FIBRILLATION
     Dosage: 1 DOSAGE FORMS DAILY;
     Route: 058
     Dates: start: 20180729, end: 20180815
  9. IMIPENEM ANHYDRE [Suspect]
     Active Substance: IMIPENEM
     Indication: INFECTION
     Dosage: 1500 MILLIGRAM DAILY;
     Route: 042
     Dates: start: 20180831, end: 20180905
  10. AMIODARONE [Concomitant]
     Active Substance: AMIODARONE
     Route: 065
  11. BISOPROLOL (HEMIFUMARATE DE) [Concomitant]
     Active Substance: BISOPROLOL FUMARATE
     Route: 065

REACTIONS (1)
  - Heparin-induced thrombocytopenia [Fatal]

NARRATIVE: CASE EVENT DATE: 20180902
